FAERS Safety Report 4271800-6 (Version None)
Quarter: 2004Q1

REPORT INFORMATION
  Report Type: 
  Country: None (occurrence: None)
  Receive Date: 20040115
  Receipt Date: 20040106
  Transmission Date: 20041129
  Serious: Yes (Hospitalization, Other)
  Sender: FDA-Public Use
  Company Number: AU-GLAXOSMITHKLINE-B0318974A

PATIENT
  Age: 44 Year
  Sex: Male

DRUGS (4)
  1. WARFARIN SODIUM [Suspect]
     Indication: AORTIC VALVE REPLACEMENT
     Dosage: 150MG PER DAY
     Route: 048
  2. CHLORPROMAZINE [Suspect]
     Dosage: 3G PER DAY
     Route: 048
  3. SALBUTAMOL [Concomitant]
     Route: 055
  4. IPRATROPIUM BROMIDE [Concomitant]
     Route: 055

REACTIONS (3)
  - INTENTIONAL OVERDOSE [None]
  - INTERNATIONAL NORMALISED RATIO INCREASED [None]
  - SOMNOLENCE [None]
